FAERS Safety Report 11088109 (Version 1)
Quarter: 2015Q2

REPORT INFORMATION
  Report Type: Spontaneous
  Country: US (occurrence: None)
  Receive Date: 20150501
  Receipt Date: 20150501
  Transmission Date: 20150821
  Serious: No
  Sender: FDA-Public Use
  Company Number: None

PATIENT
  Age: 52 Year
  Sex: Female

DRUGS (5)
  1. AMBIEN CR [Concomitant]
     Active Substance: ZOLPIDEM TARTRATE
  2. TUMS [Concomitant]
     Active Substance: CALCIUM CARBONATE
  3. MORTRIN [Concomitant]
  4. ZANTAC [Suspect]
     Active Substance: RANITIDINE HYDROCHLORIDE
     Indication: DYSPEPSIA
     Dosage: 1 PILL AS NEEDED TAKEN BY MOUTH
     Route: 048
  5. FIORICET [Concomitant]
     Active Substance: ACETAMINOPHEN\BUTALBITAL\CAFFEINE

REACTIONS (5)
  - Product label on wrong product [None]
  - Product packaging issue [None]
  - Drug dispensing error [None]
  - Product quality issue [None]
  - Intercepted drug administration error [None]

NARRATIVE: CASE EVENT DATE: 20150427
